FAERS Safety Report 24286615 (Version 1)
Quarter: 2024Q3

REPORT INFORMATION
  Report Type: Spontaneous
  Country: US (occurrence: US)
  Receive Date: 20240905
  Receipt Date: 20240905
  Transmission Date: 20241017
  Serious: No
  Sender: APPCO PHARMA
  Company Number: US-Appco Pharma LLC-2161234

PATIENT
  Sex: Female
  Weight: 51.3 kg

DRUGS (2)
  1. MODAFINIL [Suspect]
     Active Substance: MODAFINIL
     Indication: Hypersomnia
     Route: 065
     Dates: start: 2019
  2. TYLENOL [Concomitant]
     Active Substance: ACETAMINOPHEN
     Route: 065

REACTIONS (4)
  - Brain fog [Unknown]
  - Product shape issue [Unknown]
  - Drug ineffective [Unknown]
  - Somnolence [Unknown]
